FAERS Safety Report 10468509 (Version 4)
Quarter: 2015Q2

REPORT INFORMATION
  Report Type: Report from Study
  Country: TR (occurrence: TR)
  Receive Date: 20140922
  Receipt Date: 20150529
  Transmission Date: 20150821
  Serious: Yes (Hospitalization, Other)
  Sender: FDA-Public Use
  Company Number: PHHY2014TR121747

PATIENT
  Age: 64 Year
  Sex: Female

DRUGS (2)
  1. TASIGNA [Suspect]
     Active Substance: NILOTINIB
     Dosage: 600 MG, QD
     Route: 048
     Dates: end: 201502
  2. TASIGNA [Suspect]
     Active Substance: NILOTINIB
     Indication: CHRONIC MYELOID LEUKAEMIA
     Dosage: 600 MG, QD  (2 CAPSULES IN MORNING AND ONE CAPSULE IN EVENING)
     Route: 048
     Dates: start: 201003, end: 20140905

REACTIONS (10)
  - Leukopenia [Not Recovered/Not Resolved]
  - Eye infection [Recovering/Resolving]
  - Platelet count decreased [Not Recovered/Not Resolved]
  - Eye swelling [Recovering/Resolving]
  - Swelling face [Recovering/Resolving]
  - Full blood count decreased [Unknown]
  - Infection [Recovering/Resolving]
  - Haemoglobin decreased [Not Recovered/Not Resolved]
  - Acute leukaemia [Unknown]
  - Drug ineffective [Unknown]

NARRATIVE: CASE EVENT DATE: 20140905
